FAERS Safety Report 25144144 (Version 2)
Quarter: 2025Q2

REPORT INFORMATION
  Report Type: Spontaneous
  Country: CA (occurrence: CA)
  Receive Date: 20250401
  Receipt Date: 20250530
  Transmission Date: 20250717
  Serious: Yes (Hospitalization)
  Sender: CELLTRION
  Company Number: CA-PFIZER INC-202500004416

PATIENT

DRUGS (4)
  1. INFLECTRA [Suspect]
     Active Substance: INFLIXIMAB-DYYB
     Indication: Behcet^s syndrome
     Route: 042
     Dates: start: 20241128
  2. INFLECTRA [Suspect]
     Active Substance: INFLIXIMAB-DYYB
     Route: 042
     Dates: start: 20250123
  3. METHOTREXATE [Concomitant]
     Active Substance: METHOTREXATE
  4. ETANERCEPT [Concomitant]
     Active Substance: ETANERCEPT

REACTIONS (1)
  - Behcet^s syndrome [Unknown]
